FAERS Safety Report 16961180 (Version 3)
Quarter: 2020Q1

REPORT INFORMATION
  Report Type: Spontaneous
  Country: IT (occurrence: IT)
  Receive Date: 20191025
  Receipt Date: 20200313
  Transmission Date: 20200409
  Serious: Yes (Hospitalization)
  Sender: FDA-Public Use
  Company Number: IT-ACCORD-158934

PATIENT
  Age: 81 Year
  Sex: Male
  Weight: 76 kg

DRUGS (4)
  1. MICARDIS [Suspect]
     Active Substance: TELMISARTAN
     Indication: HYPERTENSION
     Dosage: STRENGTH: 40 MG
     Route: 048
  2. VANCOMYCIN MYLAN [Suspect]
     Active Substance: VANCOMYCIN
     Indication: IMPLANT SITE ABSCESS
     Dosage: ROA: ORAL
     Route: 042
     Dates: start: 20190919, end: 20190924
  3. RIFADIN [Concomitant]
     Active Substance: RIFAMPIN
     Indication: IMPLANT SITE ABSCESS
     Dosage: STRENGTH: 300 MG
     Route: 048
     Dates: start: 20190919, end: 20191015
  4. FUROSEMIDE. [Suspect]
     Active Substance: FUROSEMIDE
     Indication: OEDEMA
     Route: 048

REACTIONS (5)
  - Blood urea increased [Recovering/Resolving]
  - Confusional state [Recovering/Resolving]
  - Blood creatine phosphokinase increased [Recovering/Resolving]
  - Blood creatinine increased [Recovering/Resolving]
  - Drug level increased [Recovering/Resolving]

NARRATIVE: CASE EVENT DATE: 20190924
